FAERS Safety Report 13091791 (Version 1)
Quarter: 2017Q1

REPORT INFORMATION
  Report Type: Spontaneous
  Country: US (occurrence: US)
  Receive Date: 20170106
  Receipt Date: 20170106
  Transmission Date: 20170428
  Serious: Yes (Other)
  Sender: FDA-Public Use
  Company Number: US-BAYER-2016-246196

PATIENT
  Sex: Male

DRUGS (2)
  1. NEXAVAR [Suspect]
     Active Substance: SORAFENIB
     Indication: ACUTE MYELOMONOCYTIC LEUKAEMIA
     Dosage: 400 MG, BID
     Route: 048
     Dates: start: 201608
  2. DECITABINE. [Suspect]
     Active Substance: DECITABINE
     Indication: ACUTE MYELOMONOCYTIC LEUKAEMIA
     Dosage: 20 MG/M2, ON DAYS 1 TO 5 ON A 28-DAY CYCLE
     Route: 042
     Dates: start: 20160718

REACTIONS (2)
  - Off label use [None]
  - Acute myelomonocytic leukaemia [None]

NARRATIVE: CASE EVENT DATE: 201608
